FAERS Safety Report 7868023-8 (Version None)
Quarter: 2011Q4

REPORT INFORMATION
  Report Type: 
  Country: None (occurrence: None)
  Receive Date: 20111028
  Receipt Date: 20111020
  Transmission Date: 20120403
  Serious: No
  Sender: FDA-Public Use
  Company Number: PHHY2011GB87331

PATIENT
  Age: 31 Year
  Sex: Female
  Weight: 63.5 kg

DRUGS (2)
  1. LORAZEPAM [Suspect]
     Indication: MUSCLE SPASMS
     Dates: start: 20110523, end: 20110627
  2. OMEPRAZOLE [Suspect]
     Indication: GASTRIC PH DECREASED
     Dosage: 20 MG, UNK
     Dates: start: 20110525

REACTIONS (3)
  - PAIN [None]
  - ABASIA [None]
  - INCOHERENT [None]
